FAERS Safety Report 17113304 (Version 3)
Quarter: 2020Q2

REPORT INFORMATION
  Report Type: Report from Study
  Country: BR (occurrence: BR)
  Receive Date: 20191204
  Receipt Date: 20200528
  Transmission Date: 20200713
  Serious: Yes (Other)
  Sender: FDA-Public Use
  Company Number: BR-BIOGEN-2019BI00814265

PATIENT
  Age: 57 Year
  Sex: Female

DRUGS (3)
  1. INSULIN [Concomitant]
     Active Substance: INSULIN NOS
     Indication: DIABETES MELLITUS
     Route: 065
  2. TYSABRI [Suspect]
     Active Substance: NATALIZUMAB
     Route: 042
  3. TYSABRI [Suspect]
     Active Substance: NATALIZUMAB
     Indication: MULTIPLE SCLEROSIS
     Route: 042
     Dates: start: 20191112

REACTIONS (14)
  - Multiple sclerosis relapse [Recovered/Resolved]
  - Depression [Unknown]
  - Visual impairment [Not Recovered/Not Resolved]
  - Spinal cord infection [Not Recovered/Not Resolved]
  - Amnesia [Not Recovered/Not Resolved]
  - Nail discolouration [Recovered/Resolved]
  - Pharyngeal disorder [Recovered/Resolved]
  - Atrophy [Recovered/Resolved]
  - Crying [Unknown]
  - Prescribed underdose [Not Recovered/Not Resolved]
  - Myelitis [Not Recovered/Not Resolved]
  - Brain injury [Unknown]
  - Multiple sclerosis [Not Recovered/Not Resolved]
  - Speech disorder [Recovered/Resolved]

NARRATIVE: CASE EVENT DATE: 201911
